FAERS Safety Report 9990319 (Version 1)
Quarter: 2014Q1

REPORT INFORMATION
  Report Type: Report from Study
  Country: US (occurrence: US)
  Receive Date: 20140310
  Receipt Date: 20140310
  Transmission Date: 20141002
  Serious: No
  Sender: FDA-Public Use
  Company Number: US-ABBVIE-13P-163-1131574-00

PATIENT
  Age: 50 Year
  Sex: Female

DRUGS (4)
  1. HUMIRA [Suspect]
     Indication: CROHN^S DISEASE
     Dates: start: 20130726
  2. HUMIRA [Suspect]
  3. TYLENOL EXTRA STRENGTH [Suspect]
     Indication: PAIN IN EXTREMITY
  4. TYLENOL EXTRA STRENGTH [Suspect]
     Indication: LOCAL SWELLING

REACTIONS (6)
  - No therapeutic response [Unknown]
  - Injection site urticaria [Recovering/Resolving]
  - Pruritus [Unknown]
  - Local swelling [Recovered/Resolved]
  - Pain in extremity [Not Recovered/Not Resolved]
  - Pain in jaw [Unknown]
